FAERS Safety Report 9322380 (Version 1)
Quarter: 2013Q2

REPORT INFORMATION
  Report Type: Spontaneous
  Country: US (occurrence: US)
  Receive Date: 20130531
  Receipt Date: 20130531
  Transmission Date: 20140414
  Serious: No
  Sender: FDA-Public Use
  Company Number: US-TARO-2012P1013247

PATIENT
  Age: 54 Year
  Sex: Female
  Weight: 58.97 kg

DRUGS (12)
  1. CLOTRIMAZOLE [Suspect]
     Indication: FUNGAL INFECTION
     Route: 061
     Dates: start: 20120327, end: 20120329
  2. SYNTHROID [Concomitant]
     Dates: start: 201202
  3. SYNTHROID [Concomitant]
     Dates: start: 20120411
  4. HERBAL HYPOTHYROIDISM TREATMENT [Concomitant]
  5. CITALOPRAM [Concomitant]
  6. CANDICID FORTE [Concomitant]
  7. IMMUNE BALANCING COMPLEX [Concomitant]
  8. FC-CIDAL [Concomitant]
  9. PROBIOTICS [Concomitant]
  10. CALCIUM [Concomitant]
  11. VITAMIN C [Concomitant]
  12. MULTIVITAMIN [Concomitant]

REACTIONS (4)
  - Abscess [Recovering/Resolving]
  - Viral infection [Recovered/Resolved]
  - Blood thyroid stimulating hormone increased [Unknown]
  - Drug administered at inappropriate site [Recovered/Resolved]
